FAERS Safety Report 8492449-5 (Version None)
Quarter: 2012Q3

REPORT INFORMATION
  Report Type: 
  Country: None (occurrence: None)
  Receive Date: 20120706
  Receipt Date: 20120622
  Transmission Date: 20120928
  Serious: Yes (Disabling)
  Sender: FDA-Public Use
  Company Number: IT-ROCHE-1080971

PATIENT
  Age: 26 Year
  Sex: Female
  Weight: 44 kg

DRUGS (1)
  1. LARIAM [Suspect]
     Indication: MALARIA PROPHYLAXIS
     Route: 048
     Dates: start: 20070101

REACTIONS (14)
  - DIARRHOEA [None]
  - ABDOMINAL PAIN UPPER [None]
  - NAUSEA [None]
  - HALLUCINATION [None]
  - HYPOTENSION [None]
  - FATIGUE [None]
  - WEIGHT DECREASED [None]
  - BALANCE DISORDER [None]
  - DIZZINESS [None]
  - HEADACHE [None]
  - ABNORMAL DREAMS [None]
  - LABYRINTHITIS [None]
  - TINNITUS [None]
  - RASH [None]
